FAERS Safety Report 5441929-5 (Version None)
Quarter: 2007Q3

REPORT INFORMATION
  Report Type: 
  Country: None (occurrence: None)
  Receive Date: 20070904
  Receipt Date: 20070903
  Transmission Date: 20080115
  Serious: Yes (Hospitalization)
  Sender: FDA-Public Use
  Company Number: NL-BRISTOL-MYERS SQUIBB COMPANY-13895859

PATIENT
  Age: 56 Year
  Sex: Male
  Weight: 86 kg

DRUGS (2)
  1. SELEKTINE [Suspect]
     Indication: ISCHAEMIC HEART DISEASE PROPHYLAXIS
     Dosage: HE HAS BEEN PREVIOUSLY TAKING 10 MG FOR 10YRS AND INCREASED TO 80MG FOR MYOCARDIAL INFARCTION
     Dates: start: 20060116
  2. ISOSORBIDE DINITRATE [Concomitant]

REACTIONS (1)
  - PALPITATIONS [None]
